FAERS Safety Report 11064615 (Version 3)
Quarter: 2015Q2

REPORT INFORMATION
  Report Type: Report from Study
  Country: US (occurrence: US)
  Receive Date: 20150424
  Receipt Date: 20150513
  Transmission Date: 20150821
  Serious: Yes (Hospitalization)
  Sender: FDA-Public Use
  Company Number: US-ACTELION-A-US2015-116339

PATIENT
  Age: 32 Year
  Sex: Female

DRUGS (2)
  1. VELETRI [Suspect]
     Active Substance: EPOPROSTENOL
     Indication: PULMONARY HYPERTENSION
     Dosage: 5 NG/KG, PER MIN
     Route: 042
     Dates: start: 20150330
  2. LETAIRIS [Concomitant]
     Active Substance: AMBRISENTAN

REACTIONS (9)
  - Oedema peripheral [Unknown]
  - Malaise [Unknown]
  - Infection [Unknown]
  - Diarrhoea [Unknown]
  - Feeling abnormal [Unknown]
  - Asthenia [Unknown]
  - Headache [Unknown]
  - Chest discomfort [Unknown]
  - Pain in jaw [Unknown]
